FAERS Safety Report 8432557-8 (Version None)
Quarter: 2012Q2

REPORT INFORMATION
  Report Type: 
  Country: None (occurrence: None)
  Receive Date: 20120607
  Receipt Date: 20120529
  Transmission Date: 20120825
  Serious: Yes (Hospitalization, Other)
  Sender: FDA-Public Use
  Company Number: 2012MA006662

PATIENT
  Sex: Female
  Weight: 72.5755 kg

DRUGS (28)
  1. ALLEGRA [Concomitant]
  2. TOPAMAX [Concomitant]
  3. VICODIN/PHENERGAN [Concomitant]
  4. COLACE [Concomitant]
  5. MYLANTA [Concomitant]
  6. METOCLOPRAMIDE [Suspect]
     Indication: NAUSEA
     Dosage: 10 MG;QID 30 MIN AC + HS PRN
     Dates: start: 20090608, end: 20091216
  7. METOCLOPRAMIDE [Suspect]
     Indication: DYSPEPSIA
     Dosage: 10 MG;QID 30 MIN AC + HS PRN
     Dates: start: 20090608, end: 20091216
  8. METOCLOPRAMIDE [Suspect]
     Indication: VOMITING
     Dosage: 10 MG;QID 30 MIN AC + HS PRN
     Dates: start: 20090608, end: 20091216
  9. ONDANSETRON [Concomitant]
  10. VITAMIN D [Concomitant]
  11. PERCOCET [Concomitant]
  12. TORADOL [Concomitant]
  13. MORPHINE/PHENERGAN [Concomitant]
  14. MARIJUANA [Concomitant]
  15. TOPIRAMATE [Concomitant]
  16. ATIVAN [Concomitant]
  17. BENADRYL [Concomitant]
  18. HYDROXYZINE [Concomitant]
  19. MOTRIN [Concomitant]
  20. ZOFRAN [Concomitant]
  21. DIAZEPAM [Concomitant]
  22. LAMICTAL [Concomitant]
  23. STEROID INJECTION - UNSPECFIED [Concomitant]
  24. PROPRANOLOL [Concomitant]
  25. OXYCODONE HCL AND ACETAMINOPHEN [Concomitant]
  26. DILAUDID [Concomitant]
  27. BENADRYL [Concomitant]
  28. DICYCLOMINE [Concomitant]

REACTIONS (17)
  - PAIN [None]
  - BILIARY COLIC [None]
  - COSTOCHONDRITIS [None]
  - DYSKINESIA [None]
  - HEADACHE [None]
  - OVARIAN CYST [None]
  - MEMORY IMPAIRMENT [None]
  - CHOLELITHIASIS [None]
  - ANXIETY [None]
  - MUSCLE TWITCHING [None]
  - TARDIVE DYSKINESIA [None]
  - REFUSAL OF TREATMENT BY PATIENT [None]
  - PHOTOPHOBIA [None]
  - HYPERACUSIS [None]
  - MUSCLE SPASMS [None]
  - ABDOMINAL PAIN [None]
  - COMPULSIVE LIP BITING [None]
